FAERS Safety Report 18378732 (Version 1)
Quarter: 2020Q4

REPORT INFORMATION
  Report Type: Report from Study
  Country: None (occurrence: NL)
  Receive Date: 20201014
  Receipt Date: 20201014
  Transmission Date: 20210114
  Serious: Yes (Death)
  Sender: FDA-Public Use
  Company Number: NL-ABBVIE-17P-114-1847959-00

PATIENT
  Age: 68 Year
  Sex: Male

DRUGS (7)
  1. DUODOPA [Suspect]
     Active Substance: CARBIDOPA\LEVODOPA
     Indication: PARKINSON^S DISEASE
     Dosage: MD: 14.5, CD: 5.4, ED: 5, CND: 3.8
     Route: 050
     Dates: start: 20150916
  2. DUODOPA [Suspect]
     Active Substance: CARBIDOPA\LEVODOPA
     Dosage: MD 5.9 ML, CD 3.7 ML/HR, ED 3.0 ML, CDN 3.7 ML/HR
     Route: 050
     Dates: start: 20150929
  3. DUODOPA [Suspect]
     Active Substance: CARBIDOPA\LEVODOPA
     Dosage: MD 10.0 ML, CD 5.3 ML/HR, ED 5.0 ML, CDN 4.2 ML/HR?REMAINS AT 24 HOURS
     Route: 050
  4. CLOZAPINE. [Suspect]
     Active Substance: CLOZAPINE
     Indication: PRODUCT USED FOR UNKNOWN INDICATION
     Route: 065
  5. DUODOPA [Suspect]
     Active Substance: CARBIDOPA\LEVODOPA
     Dosage: MD 14.0 ML, CD 5.3 ML/HR, ED 5.0 ML, CDN 4.2 ML/HR?REMAINS AT 24 HOURS
     Route: 050
  6. MOVICOLON [Concomitant]
     Active Substance: POLYETHYLENE GLYCOL 3350\POTASSIUM CHLORIDE\SODIUM BICARBONATE\SODIUM CHLORIDE
     Indication: ABNORMAL FAECES
  7. SINEMET [Concomitant]
     Active Substance: CARBIDOPA\LEVODOPA
     Indication: PARKINSON^S DISEASE
     Dosage: DURING THE NIGHT

REACTIONS (53)
  - Balance disorder [Not Recovered/Not Resolved]
  - Decreased appetite [Not Recovered/Not Resolved]
  - Stoma site oedema [Unknown]
  - Weight decreased [Recovered/Resolved]
  - Therapeutic product effect variable [Not Recovered/Not Resolved]
  - Constipation [Recovering/Resolving]
  - Abnormal faeces [Unknown]
  - Discomfort [Not Recovered/Not Resolved]
  - Gait disturbance [Not Recovered/Not Resolved]
  - Taste disorder [Not Recovered/Not Resolved]
  - On and off phenomenon [Recovering/Resolving]
  - Constipation [Not Recovered/Not Resolved]
  - Mobility decreased [Not Recovered/Not Resolved]
  - Mental disorder [Not Recovered/Not Resolved]
  - Road traffic accident [Unknown]
  - Disturbance in attention [Not Recovered/Not Resolved]
  - Stoma site reaction [Not Recovered/Not Resolved]
  - Dyspnoea [Not Recovered/Not Resolved]
  - Muscle spasms [Not Recovered/Not Resolved]
  - Teeth brittle [Not Recovered/Not Resolved]
  - Abdominal distension [Not Recovered/Not Resolved]
  - Bradykinesia [Not Recovered/Not Resolved]
  - General physical health deterioration [Not Recovered/Not Resolved]
  - Parkinson^s disease [Fatal]
  - Tooth fracture [Not Recovered/Not Resolved]
  - Mood altered [Not Recovered/Not Resolved]
  - Torticollis [Not Recovered/Not Resolved]
  - Salivary hypersecretion [Not Recovered/Not Resolved]
  - Weight decreased [Not Recovered/Not Resolved]
  - Stoma site haemorrhage [Recovered/Resolved]
  - Medical device change [Unknown]
  - Device kink [Unknown]
  - Dyschezia [Unknown]
  - Fibroma [Recovered/Resolved]
  - Muscle tightness [Not Recovered/Not Resolved]
  - Impaired quality of life [Not Recovered/Not Resolved]
  - Freezing phenomenon [Not Recovered/Not Resolved]
  - Posture abnormal [Not Recovered/Not Resolved]
  - Memory impairment [Not Recovered/Not Resolved]
  - Feeding disorder [Not Recovered/Not Resolved]
  - Fall [Not Recovered/Not Resolved]
  - Therapeutic product effect variable [Recovering/Resolving]
  - Freezing phenomenon [Recovering/Resolving]
  - Speech disorder [Not Recovered/Not Resolved]
  - Restlessness [Recovered/Resolved]
  - Muscle rigidity [Not Recovered/Not Resolved]
  - Wrong technique in product usage process [Not Recovered/Not Resolved]
  - Panic attack [Not Recovered/Not Resolved]
  - Post-traumatic pain [Unknown]
  - Neck pain [Not Recovered/Not Resolved]
  - Malaise [Not Recovered/Not Resolved]
  - Dysphagia [Not Recovered/Not Resolved]
  - Hypokinesia [Not Recovered/Not Resolved]

NARRATIVE: CASE EVENT DATE: 2019
